FAERS Safety Report 9422239 (Version 1)
Quarter: 2013Q3

REPORT INFORMATION
  Report Type: Spontaneous
  Country: US (occurrence: None)
  Receive Date: 20130725
  Receipt Date: 20130725
  Transmission Date: 20140515
  Serious: Yes (Other)
  Sender: FDA-Public Use
  Company Number: None

PATIENT
  Age: 59 Year
  Sex: Female
  Weight: 53.98 kg

DRUGS (6)
  1. GABAPENTIN [Suspect]
     Route: 048
     Dates: start: 20130723, end: 20130723
  2. VENLAFAXINE [Concomitant]
  3. CLONZEPAM [Concomitant]
  4. TRAZADONE [Concomitant]
  5. OXYBUTNIN [Concomitant]
  6. LORATADINE [Concomitant]

REACTIONS (7)
  - Dizziness [None]
  - Coordination abnormal [None]
  - Tremor [None]
  - Eye movement disorder [None]
  - Speech disorder [None]
  - Rash [None]
  - Fatigue [None]
